FAERS Safety Report 9325808 (Version 1)
Quarter: 2013Q2

REPORT INFORMATION
  Report Type: Spontaneous
  Country: US (occurrence: None)
  Receive Date: 20130603
  Receipt Date: 20130603
  Transmission Date: 20140414
  Serious: No
  Sender: FDA-Public Use
  Company Number: None

PATIENT
  Age: 55 Year
  Sex: Male
  Weight: 86.18 kg

DRUGS (1)
  1. ULTRAM [Suspect]
     Indication: PAIN IN EXTREMITY
     Route: 048
     Dates: start: 20130518, end: 20130520

REACTIONS (1)
  - Inadequate analgesia [None]
